FAERS Safety Report 5894731-4 (Version None)
Quarter: 2008Q3

REPORT INFORMATION
  Report Type: 
  Country: None (occurrence: None)
  Receive Date: 20080924
  Receipt Date: 20080529
  Transmission Date: 20090109
  Serious: No
  Sender: FDA-Public Use
  Company Number: US-ASTRAZENECA-2008UW10889

PATIENT
  Sex: Female
  Weight: 64 kg

DRUGS (6)
  1. SEROQUEL [Suspect]
     Indication: DEPRESSION
     Route: 048
     Dates: start: 20080510
  2. SEROQUEL [Suspect]
     Indication: IRRITABILITY
     Route: 048
     Dates: start: 20080510
  3. SEROQUEL [Suspect]
     Indication: INSOMNIA
     Route: 048
     Dates: start: 20080510
  4. SEROQUEL [Suspect]
     Route: 048
     Dates: start: 20080527
  5. SEROQUEL [Suspect]
     Route: 048
     Dates: start: 20080527
  6. SEROQUEL [Suspect]
     Route: 048
     Dates: start: 20080527

REACTIONS (2)
  - ILL-DEFINED DISORDER [None]
  - SOMNOLENCE [None]
